FAERS Safety Report 5978304-0 (Version None)
Quarter: 2008Q4

REPORT INFORMATION
  Report Type: 
  Country: None (occurrence: None)
  Receive Date: 20081204
  Receipt Date: 20081128
  Transmission Date: 20090506
  Serious: Yes (Death, Hospitalization)
  Sender: FDA-Public Use
  Company Number: JP-BAYER-200812898BYL

PATIENT
  Age: 57 Year
  Sex: Male
  Weight: 64 kg

DRUGS (9)
  1. NEXAVAR [Suspect]
     Indication: RENAL CELL CARCINOMA STAGE IV
     Dosage: TOTAL DAILY DOSE: 800 MG  UNIT DOSE: 200 MG
     Route: 048
     Dates: start: 20080523, end: 20080707
  2. NEXAVAR [Suspect]
     Dosage: TOTAL DAILY DOSE: 800 MG  UNIT DOSE: 200 MG
     Route: 048
     Dates: start: 20080905, end: 20081031
  3. OXYCONTIN [Concomitant]
     Route: 048
     Dates: start: 20080527
  4. HYPEN [Concomitant]
     Route: 048
     Dates: start: 20080527
  5. TOLEDOMIN [Concomitant]
     Route: 048
     Dates: start: 20080527
  6. MYSLEE [Concomitant]
     Route: 048
     Dates: start: 20080527
  7. ROHYPNOL [Concomitant]
     Route: 048
     Dates: start: 20080527
  8. OXINORM [Concomitant]
     Route: 048
     Dates: start: 20080527
  9. SUMIFERON [Concomitant]
     Route: 058
     Dates: start: 20080527

REACTIONS (3)
  - DYSPNOEA [None]
  - INTERSTITIAL LUNG DISEASE [None]
  - RESPIRATORY FAILURE [None]
